FAERS Safety Report 9555462 (Version 3)
Quarter: 2013Q4

REPORT INFORMATION
  Report Type: Report from Study
  Country: US (occurrence: US)
  Receive Date: 20130926
  Receipt Date: 20131030
  Transmission Date: 20140711
  Serious: Yes (Death)
  Sender: FDA-Public Use
  Company Number: US-ROCHE-1281398

PATIENT
  Age: 12 Year
  Sex: Male
  Weight: 20.8 kg

DRUGS (1)
  1. NUTROPIN AQ [Suspect]
     Indication: BLOOD GROWTH HORMONE
     Route: 058

REACTIONS (1)
  - Death [Fatal]
